FAERS Safety Report 6081084-4 (Version None)
Quarter: 2009Q1

REPORT INFORMATION
  Report Type: 
  Country: None (occurrence: None)
  Receive Date: 20090114
  Receipt Date: 20070911
  Transmission Date: 20090719
  Serious: Yes (Life-Threatening, Hospitalization)
  Sender: FDA-Public Use
  Company Number: 266139

PATIENT
  Age: 81 Year
  Sex: Female
  Weight: 102 kg

DRUGS (3)
  1. NOVOLIN 70/30 [Suspect]
     Indication: INSULIN-REQUIRING TYPE 2 DIABETES MELLITUS
     Dosage: IU, QD, SUBCUTANEOUS
     Route: 058
     Dates: start: 20010101
  2. DIURETIC /00022001/ (HYDROCHLOROTHIAZIDE) [Concomitant]
  3. GLUCOPHAGE /00082701/ (METFORMIN) [Concomitant]

REACTIONS (2)
  - DYSGEUSIA [None]
  - HYPOGLYCAEMIC UNCONSCIOUSNESS [None]
